FAERS Safety Report 23319840 (Version 1)
Quarter: 2023Q4

REPORT INFORMATION
  Report Type: Spontaneous
  Country: CN (occurrence: CN)
  Receive Date: 20231220
  Receipt Date: 20231220
  Transmission Date: 20240109
  Serious: Yes (Other)
  Sender: FDA-Public Use
  Company Number: None

PATIENT
  Age: 20 Year
  Sex: Male
  Weight: 60.0 kg

DRUGS (3)
  1. OLANZAPINE [Suspect]
     Active Substance: OLANZAPINE
     Indication: Psychotic disorder
     Dosage: 10MG,BID
     Route: 048
     Dates: start: 20230823, end: 20231206
  2. VALPROATE SODIUM [Concomitant]
     Active Substance: VALPROATE SODIUM
     Indication: Psychotic symptom
     Dosage: 1G,BID
     Route: 048
     Dates: start: 20231106, end: 20231206
  3. Leucogen Tablets [Concomitant]
     Indication: Platelet count decreased
     Dosage: 20MG,BID
     Route: 048
     Dates: start: 20230823, end: 20231206

REACTIONS (1)
  - Pancytopenia [Recovering/Resolving]

NARRATIVE: CASE EVENT DATE: 20231013
